FAERS Safety Report 25341870 (Version 2)
Quarter: 2025Q3

REPORT INFORMATION
  Report Type: Report from Study
  Country: JP (occurrence: JP)
  Receive Date: 20250521
  Receipt Date: 20250815
  Transmission Date: 20251021
  Serious: No
  Sender: ALNYLAM PHARMACEUTICALS
  Company Number: JP-ALNYLAM PHARMACEUTICALS, INC.-ALN-2025-003322

PATIENT

DRUGS (8)
  1. AMVUTTRA [Suspect]
     Active Substance: VUTRISIRAN
     Indication: Hereditary neuropathic amyloidosis
     Route: 058
     Dates: start: 20240115
  2. VITAMINS [Concomitant]
     Active Substance: VITAMINS
     Indication: Vitamin supplementation
     Route: 048
     Dates: start: 20240115
  3. JARDIANCE [Concomitant]
     Active Substance: EMPAGLIFLOZIN
     Indication: Cardiac failure
     Route: 065
  4. SPIRONOLACTONE [Concomitant]
     Active Substance: SPIRONOLACTONE
     Indication: Cardiac failure
     Route: 065
  5. MIROGABALIN BESYLATE [Concomitant]
     Active Substance: MIROGABALIN BESYLATE
     Indication: Hereditary neuropathic amyloidosis
     Route: 065
  6. DIETARY SUPPLEMENT\PROBIOTICS [Concomitant]
     Active Substance: DIETARY SUPPLEMENT\PROBIOTICS NOS
     Indication: Hereditary neuropathic amyloidosis
     Route: 065
     Dates: start: 20240722
  7. BISOPROLOL [Concomitant]
     Active Substance: BISOPROLOL
     Indication: Cardiac failure
     Route: 065
  8. Nicorandil towa [Concomitant]
     Indication: Cardiac failure
     Route: 065

REACTIONS (2)
  - Dermatitis [Recovering/Resolving]
  - Vitamin A deficiency [Not Recovered/Not Resolved]

NARRATIVE: CASE EVENT DATE: 20240226
